FAERS Safety Report 11849496 (Version 1)
Quarter: 2015Q4

REPORT INFORMATION
  Report Type: Spontaneous
  Country: BR (occurrence: BR)
  Receive Date: 20151218
  Receipt Date: 20151218
  Transmission Date: 20160305
  Serious: Yes (Other)
  Sender: FDA-Public Use
  Company Number: BR-ELI_LILLY_AND_COMPANY-BR201512002233

PATIENT
  Sex: Female

DRUGS (2)
  1. HUMAN INSULIN [Suspect]
     Active Substance: INSULIN HUMAN
     Indication: DIABETES MELLITUS
     Dosage: 46 IU, EACH MORNING
     Route: 058
  2. HUMULIN R [Suspect]
     Active Substance: INSULIN HUMAN
     Indication: DIABETES MELLITUS
     Dosage: 10 IU, OTHER AT LUNCH
     Route: 058

REACTIONS (8)
  - Memory impairment [Unknown]
  - Blood glucose increased [Recovered/Resolved]
  - Expired product administered [Unknown]
  - Blood glucose increased [Unknown]
  - Visual acuity reduced [Unknown]
  - Drug dose omission [Unknown]
  - Angina pectoris [Unknown]
  - Drug ineffective [Unknown]

NARRATIVE: CASE EVENT DATE: 2014
